FAERS Safety Report 10161443 (Version 2)
Quarter: 2014Q2

REPORT INFORMATION
  Report Type: Spontaneous
  Country: US (occurrence: US)
  Receive Date: 20140509
  Receipt Date: 20140509
  Transmission Date: 20141212
  Serious: No
  Sender: FDA-Public Use
  Company Number: US-TEVA-414237USA

PATIENT
  Age: 19 Year
  Sex: Male

DRUGS (2)
  1. CLARAVIS [Suspect]
     Dates: start: 20130507
  2. VYVANSE [Concomitant]

REACTIONS (1)
  - Hepatic enzyme increased [Recovered/Resolved]
